FAERS Safety Report 7117848-5 (Version None)
Quarter: 2010Q4

REPORT INFORMATION
  Report Type: 
  Country: None (occurrence: None)
  Receive Date: 20101118
  Receipt Date: 20101118
  Transmission Date: 20110411
  Serious: Yes (Life-Threatening)
  Sender: FDA-Public Use
  Company Number: None

PATIENT
  Age: 69 Year
  Sex: Female
  Weight: 81.6475 kg

DRUGS (1)
  1. WELCHOL [Suspect]
     Indication: GASTROINTESTINAL DISORDER
     Dosage: 625 MG 2 EACH AM ORALLY
     Route: 048
     Dates: start: 20101029

REACTIONS (4)
  - GLOSSODYNIA [None]
  - LIP SWELLING [None]
  - SPEECH DISORDER [None]
  - SWOLLEN TONGUE [None]
